FAERS Safety Report 18320654 (Version 1)
Quarter: 2020Q3

REPORT INFORMATION
  Report Type: Spontaneous
  Country: TR (occurrence: TR)
  Receive Date: 20200928
  Receipt Date: 20200928
  Transmission Date: 20201103
  Serious: Yes (Hospitalization)
  Sender: FDA-Public Use
  Company Number: TR-PFIZER INC-2020371792

PATIENT
  Age: 43 Year
  Sex: Male
  Weight: 67 kg

DRUGS (2)
  1. UROMISIN [Concomitant]
     Indication: NEPHROLITHIASIS
     Dosage: 3 G
     Dates: start: 20200902, end: 20200903
  2. CARDURA XL [Suspect]
     Active Substance: DOXAZOSIN MESYLATE
     Indication: NEPHROLITHIASIS
     Dosage: 4 MG
     Dates: start: 20200902, end: 20200903

REACTIONS (13)
  - Syncope [Not Recovered/Not Resolved]
  - Face injury [Not Recovered/Not Resolved]
  - Product use in unapproved indication [Unknown]
  - Asthenia [Not Recovered/Not Resolved]
  - Haemorrhage [Not Recovered/Not Resolved]
  - Fatigue [Not Recovered/Not Resolved]
  - Off label use [Unknown]
  - Facial bones fracture [Not Recovered/Not Resolved]
  - Nose deformity [Not Recovered/Not Resolved]
  - Mouth injury [Not Recovered/Not Resolved]
  - Nausea [Not Recovered/Not Resolved]
  - Dyspnoea [Not Recovered/Not Resolved]
  - Dizziness [Not Recovered/Not Resolved]

NARRATIVE: CASE EVENT DATE: 202009
